FAERS Safety Report 4764057-0 (Version None)
Quarter: 2005Q3

REPORT INFORMATION
  Report Type: 
  Country: None (occurrence: None)
  Receive Date: 20050906
  Receipt Date: 20050825
  Transmission Date: 20060218
  Serious: Yes (Death)
  Sender: FDA-Public Use
  Company Number: 2004028335

PATIENT
  Age: 54 Year
  Sex: Male
  Weight: 85.2762 kg

DRUGS (9)
  1. VIAGRA [Suspect]
     Indication: ILL-DEFINED DISORDER
     Dosage: (100 MG, PRN), ORAL
     Route: 048
     Dates: start: 20030301, end: 20030315
  2. ISOSORBIDE MONONITRATE [Suspect]
     Indication: ILL-DEFINED DISORDER
     Dosage: 60 MG (60 MG, 1 IN 1 D), ORAL
     Route: 048
     Dates: end: 20030315
  3. ASPIRIN [Concomitant]
  4. LEVOFLOXACIN [Concomitant]
  5. BEXTRA [Concomitant]
  6. LIPITOR [Concomitant]
  7. LANSOPRAZOLE (LANSOPRAOZLE) [Concomitant]
  8. RAMIPRIL [Concomitant]
  9. MUCOSYL (DIPROPHYLLINE, GUAIFENESIN) [Concomitant]

REACTIONS (13)
  - APNOEA [None]
  - BLOOD PRESSURE IMMEASURABLE [None]
  - CARDIAC DISORDER [None]
  - CARDIO-RESPIRATORY ARREST [None]
  - CYANOSIS [None]
  - FORCED EXPIRATORY VOLUME DECREASED [None]
  - LOSS OF CONSCIOUSNESS [None]
  - POOR QUALITY DRUG ADMINISTERED [None]
  - PULSE ABSENT [None]
  - PUPIL FIXED [None]
  - VENTRICULAR FIBRILLATION [None]
  - VENTRICULAR TACHYCARDIA [None]
  - VITAL CAPACITY DECREASED [None]
